FAERS Safety Report 16686045 (Version 3)
Quarter: 2019Q3

REPORT INFORMATION
  Report Type: Report from Study
  Country: US (occurrence: US)
  Receive Date: 20190809
  Receipt Date: 20190827
  Transmission Date: 20191004
  Serious: No
  Sender: FDA-Public Use
  Company Number: PHEH2019US032592

PATIENT
  Age: 6 Year
  Sex: Male
  Weight: 21.5 kg

DRUGS (3)
  1. ILARIS [Suspect]
     Active Substance: CANAKINUMAB
     Dosage: 40 MG, UNK
     Route: 058
     Dates: start: 201903, end: 20190707
  2. ILARIS [Suspect]
     Active Substance: CANAKINUMAB
     Dosage: 80 MG, UNK
     Route: 058
     Dates: start: 20190708
  3. ILARIS [Suspect]
     Active Substance: CANAKINUMAB
     Indication: AUTOINFLAMMATORY DISEASE
     Dosage: 40 MG, UNK
     Route: 058
     Dates: start: 20190215

REACTIONS (3)
  - Autoinflammatory disease [Unknown]
  - Condition aggravated [Unknown]
  - Pyrexia [Recovered/Resolved]

NARRATIVE: CASE EVENT DATE: 20190620
